FAERS Safety Report 12705030 (Version 6)
Quarter: 2017Q1

REPORT INFORMATION
  Report Type: Report from Study
  Country: KR (occurrence: KR)
  Receive Date: 20160831
  Receipt Date: 20170221
  Transmission Date: 20170428
  Serious: Yes (Hospitalization)
  Sender: FDA-Public Use
  Company Number: KR-ROCHE-1816569

PATIENT
  Age: 61 Year
  Sex: Female
  Weight: 54.6 kg

DRUGS (39)
  1. BEVACIZUMAB [Suspect]
     Active Substance: BEVACIZUMAB
     Indication: NEOPLASM
  2. FOLINIC ACID [Suspect]
     Active Substance: LEUCOVORIN
     Indication: GASTRIC CANCER
     Dosage: MOST RECENT DOSE OF FOLINIC ACID, 600 MG, PRIOR TO SAE ONSET DATE WAS ON 03/AUG/2016
     Route: 042
     Dates: start: 20160720
  3. GASTER (SOUTH KOREA) [Concomitant]
     Indication: PREMEDICATION
     Route: 042
     Dates: start: 20160720, end: 20160724
  4. PHAZYME-95 [Concomitant]
     Indication: DYSPEPSIA
     Dosage: DOSE: 1 TABLET
     Route: 048
     Dates: start: 20160818, end: 20161021
  5. ENCOVER [Concomitant]
     Route: 048
     Dates: start: 20160720, end: 20160722
  6. ATEZOLIZUMAB [Suspect]
     Active Substance: ATEZOLIZUMAB
     Indication: GASTRIC CANCER
     Dosage: MOST RECENT DOSE OF ATEZOLIZUMAB, 840 MG, PRIOR TO SAE ONSET DATE WAS ON 03/AUG/2016
     Route: 042
     Dates: start: 20160720
  7. ATEZOLIZUMAB [Suspect]
     Active Substance: ATEZOLIZUMAB
     Indication: NEOPLASM
  8. NEURONTIN [Concomitant]
     Active Substance: GABAPENTIN
     Indication: SPINAL OPERATION
     Route: 048
     Dates: start: 201509, end: 20161021
  9. DEXAMETHASONE. [Concomitant]
     Active Substance: DEXAMETHASONE
     Indication: PREMEDICATION
     Route: 042
     Dates: start: 20160720, end: 20160720
  10. PHOSTEN [Concomitant]
     Indication: HYPOKALAEMIA
     Route: 042
     Dates: start: 20160817, end: 20160817
  11. FOLINIC ACID [Suspect]
     Active Substance: LEUCOVORIN
     Indication: NEOPLASM
  12. ALOXI [Concomitant]
     Active Substance: PALONOSETRON HYDROCHLORIDE
     Indication: PREMEDICATION
     Route: 042
     Dates: start: 20160720, end: 20160720
  13. SYNTHROID [Concomitant]
     Active Substance: LEVOTHYROXINE SODIUM
     Indication: HYPOTHYROIDISM
     Dosage: 100 OTHER
     Route: 048
     Dates: start: 1996
  14. PENIRAMIN [Concomitant]
     Route: 042
     Dates: start: 20160804, end: 20160804
  15. X PAIN [Concomitant]
     Indication: SPINAL OPERATION
     Route: 048
     Dates: start: 201509, end: 20161019
  16. TAZOPERAN (PIPERACILLIN SODIUM/TAZOBACTAM SODIUM) [Concomitant]
     Indication: INFECTION PROPHYLAXIS
     Route: 042
     Dates: start: 20160817, end: 20160822
  17. BEVACIZUMAB [Suspect]
     Active Substance: BEVACIZUMAB
     Indication: GASTRIC CANCER
     Dosage: MOST RECENT DOSE OF BEVACIZUMAB, 560 MG, PRIOR TO SAE ONSET DATE WAS ON 03/AUG/2016
     Route: 042
     Dates: start: 20160720
  18. PANTOLOC [Concomitant]
     Active Substance: PANTOPRAZOLE SODIUM
     Indication: DYSPEPSIA
     Route: 048
     Dates: start: 20160702, end: 20161019
  19. DEXAMETHASONE. [Concomitant]
     Active Substance: DEXAMETHASONE
     Route: 048
     Dates: start: 20160721, end: 20160724
  20. DEXAMETHASONE. [Concomitant]
     Active Substance: DEXAMETHASONE
     Route: 042
     Dates: start: 20160803, end: 20160803
  21. MACPERAN [Concomitant]
     Active Substance: METOCLOPRAMIDE HYDROCHLORIDE
     Route: 042
     Dates: start: 20160804, end: 20160804
  22. OXALIPLATIN. [Suspect]
     Active Substance: OXALIPLATIN
     Indication: GASTRIC CANCER
     Dosage: MOST RECENT DOSE OF OXALIPLATIN, 130 MG, PRIOR TO SAE ONSET DATE WAS ON 03/AUG/2016
     Route: 042
     Dates: start: 20160720
  23. ENCOVER [Concomitant]
     Indication: DECREASED APPETITE
     Route: 048
     Dates: start: 20160805, end: 20160805
  24. ALOXI [Concomitant]
     Active Substance: PALONOSETRON HYDROCHLORIDE
     Route: 042
     Dates: start: 20160803, end: 20160803
  25. DEXAMETHASONE. [Concomitant]
     Active Substance: DEXAMETHASONE
     Route: 048
     Dates: start: 20160804, end: 20160806
  26. STILNOX [Concomitant]
     Active Substance: ZOLPIDEM TARTRATE
     Indication: INSOMNIA
     Route: 048
     Dates: start: 20160721, end: 20160721
  27. TANTUM (SOUTH KOREA) [Concomitant]
     Indication: INFECTION PROPHYLAXIS
     Route: 061
     Dates: start: 20160721, end: 20161019
  28. DEXTROSE/POTASSIUM CHLORIDE/SODIUM CHLORIDE [Concomitant]
     Indication: HYPOKALAEMIA
     Dosage: DEXTROSE 10%/POTASSIUM CHLORIDE/SODIUM CHLORIDE
     Route: 042
     Dates: start: 20160817, end: 20160824
  29. FLUOROURACIL. [Suspect]
     Active Substance: FLUOROURACIL
     Indication: NEOPLASM
  30. GASTER (SOUTH KOREA) [Concomitant]
     Route: 048
     Dates: start: 20160803, end: 20160806
  31. AD-MUC (SOUTH KOREA) [Concomitant]
     Indication: INFECTION PROPHYLAXIS
     Route: 061
     Dates: start: 20160721, end: 20161019
  32. OXALIPLATIN. [Suspect]
     Active Substance: OXALIPLATIN
     Indication: NEOPLASM
  33. FLUOROURACIL. [Suspect]
     Active Substance: FLUOROURACIL
     Indication: GASTRIC CANCER
     Dosage: 400 MG/M2 EVERY TWO WEEKS PLUS FOLLOW UP 2400 MG/M2 CONTINUOUS INTRAVENOUS INFUSION OVER 46 HOURS?MO
     Route: 042
     Dates: start: 20160720
  34. ALBIS [Concomitant]
     Active Substance: BISMUTH SUBCITRATE\RANITIDINE HYDROCHLORIDE\SUCRALFATE
     Indication: PROPHYLAXIS
     Route: 048
     Dates: start: 201509, end: 20161019
  35. OPALMON [Concomitant]
     Active Substance: LIMAPROST
     Indication: SPINAL OPERATION
     Dosage: 5 OTHER
     Route: 048
     Dates: start: 201509
  36. BUSPAR [Concomitant]
     Active Substance: BUSPIRONE HYDROCHLORIDE
     Indication: SPINAL OPERATION
     Route: 048
     Dates: start: 201509, end: 20161021
  37. PENIRAMIN [Concomitant]
     Indication: NAUSEA
     Route: 042
     Dates: start: 20160721, end: 20160721
  38. MACPERAN [Concomitant]
     Active Substance: METOCLOPRAMIDE HYDROCHLORIDE
     Indication: NAUSEA
     Route: 042
     Dates: start: 20160721, end: 20160721
  39. TAZOPERAN (PIPERACILLIN SODIUM/TAZOBACTAM SODIUM) [Concomitant]
     Indication: NEUTROPHIL COUNT DECREASED

REACTIONS (1)
  - Neutrophil count decreased [Recovered/Resolved]

NARRATIVE: CASE EVENT DATE: 20160803
